FAERS Safety Report 10688823 (Version 1)
Quarter: 2015Q1

REPORT INFORMATION
  Report Type: Report from Study
  Country: JP (occurrence: JP)
  Receive Date: 20150103
  Receipt Date: 20150103
  Transmission Date: 20150720
  Serious: Yes (Hospitalization, Other)
  Sender: FDA-Public Use
  Company Number: JP-BRISTOL-MYERS SQUIBB COMPANY-21343785

PATIENT
  Age: 46 Year
  Sex: Female
  Weight: 58.6 kg

DRUGS (30)
  1. CLOPIDOGREL SULFATE [Concomitant]
     Active Substance: CLOPIDOGREL BISULFATE
  2. BROMHEXINE HYDROCHLORIDE [Concomitant]
     Active Substance: BROMHEXINE HYDROCHLORIDE
  3. RABEPRAZOLE SODIUM. [Concomitant]
     Active Substance: RABEPRAZOLE SODIUM
     Dosage: UNK
     Dates: start: 20130801
  4. AZULENE SULFONATE SODIUM [Concomitant]
     Dosage: UNK
     Dates: start: 20140729
  5. TRANEXAMIC ACID. [Concomitant]
     Active Substance: TRANEXAMIC ACID
     Dosage: UNK
     Dates: start: 20140729
  6. AMLODIPINE [Concomitant]
     Active Substance: AMLODIPINE BESYLATE
     Dosage: UNK
     Dates: start: 20140822, end: 20140826
  7. ACETAMINOPHEN. [Concomitant]
     Active Substance: ACETAMINOPHEN
     Dosage: UNK
     Dates: start: 20140822
  8. DOMIPHEN BROMIDE [Concomitant]
     Active Substance: DOMIPHEN BROMIDE
     Dosage: UNK
     Dates: start: 20140722
  9. ENALAPRIL MALEATE. [Concomitant]
     Active Substance: ENALAPRIL MALEATE
     Dosage: 5 MG, UNK
     Dates: start: 20140804
  10. HEPARINOID [Concomitant]
     Active Substance: CHONDROITIN SULFATE (BOVINE)
  11. SALBUTAMOL SULFATE [Concomitant]
     Active Substance: ALBUTEROL SULFATE
  12. PREDNISOLONE. [Suspect]
     Active Substance: PREDNISOLONE
     Indication: LUPUS NEPHRITIS
     Dosage: 5 MG, UNK
     Route: 065
     Dates: start: 20140709, end: 20140821
  13. ZOLPIDEM TARTRATE. [Concomitant]
     Active Substance: ZOLPIDEM TARTRATE
     Dosage: UNK
     Dates: start: 20140622
  14. LEVOFLOXACIN. [Concomitant]
     Active Substance: LEVOFLOXACIN
     Dosage: UNK
     Dates: start: 20140807, end: 20140812
  15. SENNOSIDE [Concomitant]
     Active Substance: SENNOSIDES
     Dosage: UNK
     Dates: start: 20140813
  16. KETOPROFEN. [Concomitant]
     Active Substance: KETOPROFEN
     Dosage: UNK
     Dates: start: 20140814
  17. SULFAMETHOXAZOLE AND TRIMETHOPRIM [Concomitant]
     Active Substance: SULFAMETHOXAZOLE\TRIMETHOPRIM
     Dosage: UNK
     Dates: start: 20140820
  18. OZAGREL SODIUM [Concomitant]
  19. PLACEBO [Suspect]
     Active Substance: UNSPECIFIED INGREDIENT
     Indication: LUPUS NEPHRITIS
     Dosage: 1500 MG, QD
     Route: 048
     Dates: start: 20140818
  20. METHYLPREDNISOLONE. [Suspect]
     Active Substance: METHYLPREDNISOLONE
     Indication: LUPUS NEPHRITIS
     Dosage: 31.6 NG, QD
     Route: 048
     Dates: start: 20140822
  21. POVIDONE-IODINE. [Concomitant]
     Active Substance: POVIDONE-IODINE
     Dosage: UNK
     Dates: start: 20140724
  22. CARBOCYSTEINE [Concomitant]
     Active Substance: CARBOCYSTEINE
     Dosage: UNK
     Dates: start: 20140729
  23. VOLTAREN [Concomitant]
     Active Substance: DICLOFENAC SODIUM
     Dosage: UNK
     Dates: start: 20140722
  24. PLACEBO [Suspect]
     Active Substance: UNSPECIFIED INGREDIENT
     Indication: LUPUS NEPHRITIS
     Dosage: 250 ML, QD
     Route: 042
     Dates: start: 20140818
  25. BLINDED ABATACEPT [Suspect]
     Active Substance: ABATACEPT
     Indication: LUPUS NEPHRITIS
     Dosage: 1500 MG, QD
     Route: 048
     Dates: start: 20140818
  26. DILAZEP HCL [Concomitant]
     Active Substance: DILAZEP DIHYDROCHLORIDE
     Dosage: UNK
     Dates: start: 20130801
  27. BLINDED ABATACEPT [Suspect]
     Active Substance: ABATACEPT
     Indication: LUPUS NEPHRITIS
     Dosage: 250 ML, QD
     Route: 042
     Dates: start: 20140818
  28. BLINDED MYCOPHENOLATE MOFETIL [Suspect]
     Active Substance: MYCOPHENOLATE MOFETIL
     Indication: LUPUS NEPHRITIS
     Dosage: 1500 MG, QD
     Route: 048
     Dates: start: 20140818
  29. CALONAL [Concomitant]
     Active Substance: ACETAMINOPHEN
     Dosage: UNK
     Dates: start: 20140722
  30. EDARAVONE [Concomitant]
     Active Substance: EDARAVONE

REACTIONS (4)
  - Cerebral infarction [Recovered/Resolved]
  - Vasculitis [None]
  - Dysarthria [None]
  - Muscular weakness [None]

NARRATIVE: CASE EVENT DATE: 20140826
